FAERS Safety Report 15890437 (Version 1)
Quarter: 2019Q1

REPORT INFORMATION
  Report Type: Spontaneous
  Country: US (occurrence: US)
  Receive Date: 20190130
  Receipt Date: 20190130
  Transmission Date: 20190417
  Serious: No
  Sender: FDA-Public Use
  Company Number: None

PATIENT
  Age: 53 Year
  Sex: Male

DRUGS (2)
  1. TESTOSTERONE CYPIONATE. [Suspect]
     Active Substance: TESTOSTERONE CYPIONATE
     Indication: BLOOD TESTOSTERONE DECREASED
     Dosage: ?          QUANTITY:7 ML;OTHER FREQUENCY:EVERY 2 WEEKS;OTHER ROUTE:INTRAMUSCULARLY?
     Dates: start: 20170320, end: 20180207
  2. TESTOSTERONE CYPIONATE. [Suspect]
     Active Substance: TESTOSTERONE CYPIONATE
     Indication: BLOOD TESTOSTERONE DECREASED
     Dosage: ?          QUANTITY:1 ML;OTHER FREQUENCY:EVERY 2 WEEKS;OTHER ROUTE:INTRAMUSCULARLY?
     Dates: start: 20170320, end: 20180207

REACTIONS (3)
  - Urticaria [None]
  - Hyperhidrosis [None]
  - Neoplasm [None]

NARRATIVE: CASE EVENT DATE: 20170320
